FAERS Safety Report 12911711 (Version 1)
Quarter: 2016Q4

REPORT INFORMATION
  Report Type: Spontaneous
  Country: US (occurrence: US)
  Receive Date: 20161103
  Receipt Date: 20161103
  Transmission Date: 20170207
  Serious: Yes (Life-Threatening, Hospitalization)
  Sender: FDA-Public Use
  Company Number: None

PATIENT
  Age: 67 Year
  Sex: Female
  Weight: 78.75 kg

DRUGS (15)
  1. CORGARD [Concomitant]
     Active Substance: NADOLOL
  2. FUROSEMIDE. [Concomitant]
     Active Substance: FUROSEMIDE
  3. PROTONI [Concomitant]
  4. TRULICITY [Concomitant]
     Active Substance: DULAGLUTIDE
  5. ACTOS [Concomitant]
     Active Substance: PIOGLITAZONE HYDROCHLORIDE
  6. COLCRYS [Concomitant]
     Active Substance: COLCHICINE
  7. FLECAINIDE [Concomitant]
     Active Substance: FLECAINIDE
  8. IRON [Concomitant]
     Active Substance: IRON
  9. PRAVASTATIN. [Concomitant]
     Active Substance: PRAVASTATIN
  10. INVOKANA [Concomitant]
     Active Substance: CANAGLIFLOZIN
  11. POTA-POTASSIUM [Concomitant]
  12. PRADAXA [Suspect]
     Active Substance: DABIGATRAN ETEXILATE MESYLATE
     Indication: ATRIAL FIBRILLATION
     Dosage: 12 CAPSULE(S) DAILY ORAL
     Route: 048
     Dates: start: 20160411, end: 20160509
  13. ALLOPURINOL. [Concomitant]
     Active Substance: ALLOPURINOL
  14. METFORMIN [Concomitant]
     Active Substance: METFORMIN HYDROCHLORIDE
  15. VITAMIN [Concomitant]
     Active Substance: VITAMINS

REACTIONS (1)
  - Internal haemorrhage [None]

NARRATIVE: CASE EVENT DATE: 20160508
